FAERS Safety Report 26174891 (Version 1)
Quarter: 2025Q4

REPORT INFORMATION
  Report Type: Spontaneous
  Country: US (occurrence: None)
  Receive Date: 20251217
  Receipt Date: 20251217
  Transmission Date: 20260118
  Serious: Yes (Other)
  Sender: FDA-CTU
  Company Number: None

PATIENT
  Age: 51 Year
  Sex: Female
  Weight: 64.35 kg

DRUGS (8)
  1. BELSOMRA [Suspect]
     Active Substance: SUVOREXANT
     Indication: Sleep disorder
     Dosage: OTHER QUANTITY : 1 TABLET(S);?FREQUENCY : AT BEDTIME;
     Route: 048
     Dates: start: 20251016, end: 20251210
  2. Concerta 54mg daily [Concomitant]
  3. ADDERALL [Concomitant]
     Active Substance: AMPHETAMINE ASPARTATE\AMPHETAMINE SULFATE\DEXTROAMPHETAMINE SACCHARATE\DEXTROAMPHETAMINE SULFATE
  4. Levocetirizin 5mg [Concomitant]
  5. TOPIRAMATE [Concomitant]
     Active Substance: TOPIRAMATE
  6. Alprazolam.25mg [Concomitant]
  7. 200mg magnesium [Concomitant]
  8. VITAMINS [Concomitant]
     Active Substance: VITAMINS

REACTIONS (6)
  - Pain [None]
  - Arthralgia [None]
  - Musculoskeletal stiffness [None]
  - Therapy change [None]
  - Movement disorder [None]
  - Therapy cessation [None]

NARRATIVE: CASE EVENT DATE: 20251111
